FAERS Safety Report 5126919-4 (Version None)
Quarter: 2006Q4

REPORT INFORMATION
  Report Type: 
  Country: None (occurrence: None)
  Receive Date: 20061010
  Receipt Date: 20060925
  Transmission Date: 20070319
  Serious: Yes (Hospitalization, Other)
  Sender: FDA-Public Use
  Company Number: 2006119402

PATIENT
  Sex: Female

DRUGS (3)
  1. BEXTRA [Suspect]
     Dates: start: 20040101
  2. CELEBREX [Suspect]
     Dates: start: 20040101
  3. VIOXX [Suspect]
     Dates: start: 20040101

REACTIONS (1)
  - CEREBROVASCULAR ACCIDENT [None]
